FAERS Safety Report 12925999 (Version 5)
Quarter: 2019Q4

REPORT INFORMATION
  Report Type: Spontaneous
  Country: US (occurrence: US)
  Receive Date: 20161108
  Receipt Date: 20191115
  Transmission Date: 20200122
  Serious: Yes (Other)
  Sender: FDA-Public Use
  Company Number: US-SA-2016SA180981

PATIENT
  Age: 71 Year
  Sex: Male

DRUGS (14)
  1. ASPIRIN 81 [Concomitant]
     Active Substance: ASPIRIN
  2. RANITIDINE. [Concomitant]
     Active Substance: RANITIDINE
  3. MIRALAX [Concomitant]
     Active Substance: POLYETHYLENE GLYCOL 3350
  4. LISINOPRIL. [Concomitant]
     Active Substance: LISINOPRIL
     Dosage: UNK
  5. SYNTHROID [Concomitant]
     Active Substance: LEVOTHYROXINE SODIUM
     Dosage: UNK
  6. CULTURELLE [Concomitant]
     Active Substance: LACTOBACILLUS RHAMNOSUS
  7. COLECALCIFEROL [Suspect]
     Active Substance: CHOLECALCIFEROL
     Dosage: UNK UNK,UNK
     Route: 065
  8. PRALUENT [Suspect]
     Active Substance: ALIROCUMAB
     Indication: HYPERLIPIDAEMIA
     Dosage: 75 MG,QOW
     Route: 058
     Dates: start: 20160805
  9. OMEPRAZOLE. [Concomitant]
     Active Substance: OMEPRAZOLE
     Dosage: UNK
  10. CYANOCOBALAMIN. [Suspect]
     Active Substance: CYANOCOBALAMIN
     Dosage: UNK UNK,UNK
     Route: 065
  11. LINZESS [Concomitant]
     Active Substance: LINACLOTIDE
  12. TURMERIC [CURCUMA LONGA] [Concomitant]
     Active Substance: HERBALS\TURMERIC
  13. TUMS [Concomitant]
     Active Substance: CALCIUM CARBONATE
  14. GINGER [ZINGIBER OFFICINALE RHIZOME] [Concomitant]
     Active Substance: GINGER

REACTIONS (9)
  - Sneezing [Unknown]
  - Eye disorder [Unknown]
  - Cataract [Unknown]
  - Nasopharyngitis [Unknown]
  - Cough [Unknown]
  - Rash [Recovering/Resolving]
  - Unevaluable event [Unknown]
  - Blindness unilateral [Unknown]
  - Pruritus [Unknown]

NARRATIVE: CASE EVENT DATE: 201611
